FAERS Safety Report 5894886-1 (Version None)
Quarter: 2008Q3

REPORT INFORMATION
  Report Type: 
  Country: None (occurrence: None)
  Receive Date: 20080924
  Receipt Date: 20080717
  Transmission Date: 20090109
  Serious: No
  Sender: FDA-Public Use
  Company Number: US-ASTRAZENECA-2008UW14945

PATIENT
  Age: 50 Year
  Sex: Female
  Weight: 59 kg

DRUGS (4)
  1. SEROQUEL [Suspect]
     Route: 048
     Dates: start: 20080501, end: 20080612
  2. KLONOPIN [Concomitant]
  3. GABAPENTIN [Concomitant]
  4. EFFEXOR [Concomitant]

REACTIONS (1)
  - TONGUE DISORDER [None]
